APPROVED DRUG PRODUCT: YUTOPAR
Active Ingredient: RITODRINE HYDROCHLORIDE
Strength: 15MG/ML
Dosage Form/Route: INJECTABLE;INJECTION
Application: N018580 | Product #002
Applicant: ASTRAZENECA LP
Approved: Sep 27, 1984 | RLD: No | RS: No | Type: DISCN